FAERS Safety Report 16306913 (Version 1)
Quarter: 2019Q2

REPORT INFORMATION
  Report Type: Spontaneous
  Country: DE (occurrence: DE)
  Receive Date: 20190513
  Receipt Date: 20190513
  Transmission Date: 20190711
  Serious: Yes (Death)
  Sender: FDA-Public Use
  Company Number: DE-009507513-1905DEU001981

PATIENT
  Age: 71 Year
  Sex: Female
  Weight: 59 kg

DRUGS (1)
  1. KEYTRUDA [Suspect]
     Active Substance: PEMBROLIZUMAB
     Dosage: DAILY DOSE: 200 MG MILLGRAM(S) EVERY 3 WEEKS
     Route: 042
     Dates: start: 20190219, end: 20190312

REACTIONS (3)
  - Epidermolysis [Fatal]
  - Infection [Fatal]
  - Toxic epidermal necrolysis [Fatal]

NARRATIVE: CASE EVENT DATE: 20190330
